FAERS Safety Report 12775220 (Version 3)
Quarter: 2016Q4

REPORT INFORMATION
  Report Type: Spontaneous
  Country: US (occurrence: US)
  Receive Date: 20160923
  Receipt Date: 20161004
  Transmission Date: 20170207
  Serious: No
  Sender: FDA-Public Use
  Company Number: US-HORIZON-PEN-0453-2016

PATIENT
  Age: 51 Year
  Sex: Male

DRUGS (5)
  1. CHONDROITIN [Concomitant]
     Active Substance: CHONDROITIN
  2. PENNSAID [Suspect]
     Active Substance: DICLOFENAC SODIUM
     Dosage: 2 PUMPS TWICE DAILY
     Dates: start: 201609, end: 201609
  3. FISH OIL [Concomitant]
     Active Substance: FISH OIL
  4. GLUCOSAMINE [Concomitant]
     Active Substance: GLUCOSAMINE
  5. MULTIVITAMIN [Concomitant]
     Active Substance: VITAMINS
     Dosage: DAILY

REACTIONS (5)
  - Application site exfoliation [Recovering/Resolving]
  - Off label use [Recovered/Resolved]
  - Dry skin [Recovering/Resolving]
  - Application site pain [Recovered/Resolved]
  - Application site rash [Recovered/Resolved]

NARRATIVE: CASE EVENT DATE: 201609
